FAERS Safety Report 13754798 (Version 1)
Quarter: 2017Q3

REPORT INFORMATION
  Report Type: Spontaneous
  Country: JP (occurrence: JP)
  Receive Date: 20170714
  Receipt Date: 20170714
  Transmission Date: 20171127
  Serious: Yes (Other)
  Sender: FDA-Public Use
  Company Number: JP-BRISTOL-MYERS SQUIBB COMPANY-BMS-2017-062810

PATIENT
  Age: 4 Decade
  Sex: Female

DRUGS (1)
  1. ARIPIPRAZOLE. [Suspect]
     Active Substance: ARIPIPRAZOLE
     Indication: SCHIZOPHRENIA
     Dosage: 6 MG, UNK
     Route: 065
     Dates: start: 20060822

REACTIONS (3)
  - Maternal exposure during pregnancy [Recovered/Resolved]
  - Product use issue [Unknown]
  - Abortion spontaneous [Unknown]
